FAERS Safety Report 25533892 (Version 1)
Quarter: 2025Q3

REPORT INFORMATION
  Report Type: Spontaneous
  Country: US (occurrence: None)
  Receive Date: 20250708
  Receipt Date: 20250708
  Transmission Date: 20251021
  Serious: Yes (Other)
  Sender: FDA-CTU
  Company Number: None

PATIENT
  Age: 31 Year
  Sex: Female
  Weight: 57.6 kg

DRUGS (13)
  1. ALLEGRA ALLERGY [Suspect]
     Active Substance: FEXOFENADINE HYDROCHLORIDE
     Indication: Seasonal allergy
     Dosage: OTHER QUANTITY : 1 TABLET(S);?FREQUENCY : DAILY;?
     Route: 048
     Dates: start: 20250706, end: 20250708
  2. ALLEGRA ALLERGY [Suspect]
     Active Substance: FEXOFENADINE HYDROCHLORIDE
     Indication: Allergy to animal
  3. Lisdexamfetamine 40 mg [Concomitant]
  4. ZYRTEC [Concomitant]
     Active Substance: CETIRIZINE HYDROCHLORIDE
  5. VYVANSE [Concomitant]
     Active Substance: LISDEXAMFETAMINE DIMESYLATE
  6. ATENOLOL [Concomitant]
     Active Substance: ATENOLOL
  7. PULMICORT FLEXHALER [Concomitant]
     Active Substance: BUDESONIDE
  8. ALBUTEROL SULFATE [Concomitant]
     Active Substance: ALBUTEROL SULFATE
  9. METHOCARBAMOL [Suspect]
     Active Substance: METHOCARBAMOL
  10. 5% lidocaine patch [Concomitant]
  11. VITAMIN D3 [Concomitant]
     Active Substance: CHOLECALCIFEROL
  12. K2 100mcg [Concomitant]
  13. neti pot saline rinse [Concomitant]

REACTIONS (5)
  - Fatigue [None]
  - Impaired driving ability [None]
  - Depressed mood [None]
  - Anxiety [None]
  - Depressed mood [None]

NARRATIVE: CASE EVENT DATE: 20250706
